FAERS Safety Report 24147089 (Version 1)
Quarter: 2024Q3

REPORT INFORMATION
  Report Type: Spontaneous
  Country: SA (occurrence: SA)
  Receive Date: 20240729
  Receipt Date: 20240729
  Transmission Date: 20241017
  Serious: Yes (Other)
  Sender: NOVARTIS
  Company Number: SA-002147023-NVSC2024SA123342

PATIENT
  Age: 55 Year
  Sex: Male

DRUGS (1)
  1. LEQVIO [Suspect]
     Active Substance: INCLISIRAN SODIUM
     Indication: Arteriosclerosis
     Dosage: 284 MG (AT DAY 1 THEN AFTER 3 MONTHS THEN EVERY 6 MONTHS)
     Route: 058

REACTIONS (2)
  - Urticaria [Recovered/Resolved]
  - Injection site rash [Recovered/Resolved]
